FAERS Safety Report 5024403-X (Version None)
Quarter: 2006Q2

REPORT INFORMATION
  Report Type: 
  Country: None (occurrence: None)
  Receive Date: 20060426
  Receipt Date: 20060301
  Transmission Date: 20061013
  Serious: No
  Sender: FDA-Public Use
  Company Number: 2006031535

PATIENT

DRUGS (2)
  1. LYRICA [Suspect]
     Indication: ILL-DEFINED DISORDER
     Dosage: 300 MG (150 MG, 2 IN 1 D)
     Dates: start: 20060201
  2. GABAPENTIN [Suspect]
     Indication: ILL-DEFINED DISORDER

REACTIONS (1)
  - DYSARTHRIA [None]
